FAERS Safety Report 24081056 (Version 1)
Quarter: 2024Q3

REPORT INFORMATION
  Report Type: Spontaneous
  Country: CN (occurrence: CN)
  Receive Date: 20240711
  Receipt Date: 20240711
  Transmission Date: 20241016
  Serious: Yes (Life-Threatening, Hospitalization)
  Sender: ELI LILLY AND CO
  Company Number: CN-Merck Healthcare KGaA-2024037137

PATIENT
  Age: 58 Year
  Sex: Male
  Weight: 55 kg

DRUGS (10)
  1. ERBITUX [Suspect]
     Active Substance: CETUXIMAB
     Indication: Colon cancer metastatic
     Dosage: 500 MG/M2, UNK
     Route: 041
     Dates: start: 202302
  2. ERBITUX [Suspect]
     Active Substance: CETUXIMAB
     Dosage: 500 MG/M2, UNK
     Route: 041
     Dates: start: 20240618, end: 20240618
  3. IRINOTECAN HYDROCHLORIDE [Suspect]
     Active Substance: IRINOTECAN HYDROCHLORIDE
     Indication: Colon cancer metastatic
     Dosage: 180 MG/M2, DAILY
     Route: 042
     Dates: start: 202302
  4. IRINOTECAN HYDROCHLORIDE [Suspect]
     Active Substance: IRINOTECAN HYDROCHLORIDE
     Dosage: 180 MG/M2, DAILY
     Route: 042
     Dates: start: 20240618, end: 20240618
  5. FLUOROURACIL [Suspect]
     Active Substance: FLUOROURACIL
     Indication: Colon cancer metastatic
     Dosage: 400 MG/M2, DAILY
     Route: 042
     Dates: start: 202302
  6. FLUOROURACIL [Suspect]
     Active Substance: FLUOROURACIL
     Dosage: 1200 MG/M2, DAILY
     Route: 065
     Dates: start: 202302
  7. FLUOROURACIL [Suspect]
     Active Substance: FLUOROURACIL
     Dosage: 400 MG/M2, DAILY
     Route: 042
     Dates: start: 20240618, end: 20240618
  8. FLUOROURACIL [Suspect]
     Active Substance: FLUOROURACIL
     Dosage: 1200 MG/M2, DAILY
     Route: 065
     Dates: start: 20240618, end: 20240619
  9. LEUCOVORIN CALCIUM [Suspect]
     Active Substance: LEUCOVORIN CALCIUM
     Indication: Colon cancer metastatic
     Dosage: 400 MG/M2, DAILY
     Route: 041
     Dates: start: 202302
  10. LEUCOVORIN CALCIUM [Suspect]
     Active Substance: LEUCOVORIN CALCIUM
     Dosage: 400 MG/M2, DAILY
     Route: 041
     Dates: start: 20240618, end: 20240618

REACTIONS (1)
  - Myelosuppression [Recovering/Resolving]

NARRATIVE: CASE EVENT DATE: 20240629
